FAERS Safety Report 8348265-8 (Version None)
Quarter: 2012Q2

REPORT INFORMATION
  Report Type: 
  Country: None (occurrence: None)
  Receive Date: 20120509
  Receipt Date: 20120503
  Transmission Date: 20120825
  Serious: Yes (Other)
  Sender: FDA-Public Use
  Company Number: US-PFIZER INC-2012109313

PATIENT
  Sex: Female
  Weight: 74.83 kg

DRUGS (5)
  1. NEURONTIN [Suspect]
     Indication: BREAST CANCER FEMALE
     Dosage: 300 MG, DAILY
     Route: 048
     Dates: start: 20110901, end: 20110101
  2. NEURONTIN [Suspect]
     Indication: HOT FLUSH
     Dosage: UNK
     Route: 048
     Dates: start: 20100101
  3. NEURONTIN [Suspect]
     Dosage: 600 MG, 3X/DAY
     Route: 048
     Dates: start: 20110101, end: 20110101
  4. SYNTHROID [Concomitant]
     Indication: HYPOTHYROIDISM
     Dosage: 50 UG, UNK
     Dates: start: 20080101
  5. SYNTHROID [Concomitant]
     Dosage: 100 UG, UNK

REACTIONS (2)
  - COGNITIVE DISORDER [None]
  - CONFUSIONAL STATE [None]
